FAERS Safety Report 14240417 (Version 1)
Quarter: 2017Q4

REPORT INFORMATION
  Report Type: Spontaneous
  Country: US (occurrence: US)
  Receive Date: 20171130
  Receipt Date: 20171130
  Transmission Date: 20180321
  Serious: No
  Sender: FDA-Public Use
  Company Number: PHHY2017US170221

PATIENT
  Age: 38 Year
  Sex: Female

DRUGS (1)
  1. ATOPICA (ANIMAL HEALTH) [Suspect]
     Active Substance: CYCLOSPORINE
     Indication: PRODUCT USED FOR UNKNOWN INDICATION
     Dosage: UNK
     Route: 047
     Dates: start: 20171115

REACTIONS (2)
  - Accidental exposure to product [Unknown]
  - Eyelid oedema [Recovering/Resolving]
